FAERS Safety Report 9557343 (Version 2)
Quarter: 2014Q1

REPORT INFORMATION
  Report Type: Report from Study
  Country: ES (occurrence: ES)
  Receive Date: 20130926
  Receipt Date: 20140219
  Transmission Date: 20141002
  Serious: Yes (Hospitalization)
  Sender: FDA-Public Use
  Company Number: ES-B.I. PHARMACEUTICALS,INC./RIDGEFIELD-2013-ES-00523ES

PATIENT
  Age: 76 Year
  Sex: Female

DRUGS (5)
  1. AFATINIB [Suspect]
     Indication: NON-SMALL CELL LUNG CANCER
     Dosage: 40 MG
     Route: 048
     Dates: end: 20130415
  2. AFATINIB [Suspect]
     Dosage: 30 MG
     Route: 048
     Dates: start: 20130528, end: 20130615
  3. DEXAMETHASONE [Concomitant]
     Indication: METASTASES TO MENINGES
     Dosage: 4 MG
     Route: 048
     Dates: start: 20130528
  4. OMEPRAZOLE [Concomitant]
     Indication: GASTRITIS PROPHYLAXIS
     Dosage: 20 MG
     Route: 048
     Dates: start: 20130321
  5. CRANEAL RADIOTHERAPY [Concomitant]

REACTIONS (2)
  - Diarrhoea [Recovered/Resolved]
  - Oesophagitis [Recovered/Resolved]
